FAERS Safety Report 4873582-3 (Version None)
Quarter: 2006Q1

REPORT INFORMATION
  Report Type: 
  Country: None (occurrence: None)
  Receive Date: 20060105
  Receipt Date: 20051005
  Transmission Date: 20060701
  Serious: Yes (Hospitalization)
  Sender: FDA-Public Use
  Company Number: US-MERCK-0510USA04816

PATIENT
  Age: 40 Year
  Sex: Female
  Weight: 84 kg

DRUGS (2)
  1. VIOXX [Suspect]
     Indication: ARTHRITIS
     Route: 048
     Dates: start: 19991001, end: 20020101
  2. TYLENOL [Concomitant]
     Route: 065

REACTIONS (3)
  - ARRHYTHMIA [None]
  - DEEP VEIN THROMBOSIS [None]
  - PALPITATIONS [None]
